FAERS Safety Report 5620021-0 (Version None)
Quarter: 2008Q1

REPORT INFORMATION
  Report Type: 
  Country: None (occurrence: None)
  Receive Date: 20080208
  Receipt Date: 20080103
  Transmission Date: 20080703
  Serious: No
  Sender: FDA-Public Use
  Company Number: US-ABBOTT-08P-163-0432356-00

PATIENT
  Age: 40 Year
  Sex: Female

DRUGS (4)
  1. KALETRA [Suspect]
     Indication: HIV INFECTION
     Route: 048
     Dates: start: 20070101
  2. TRAVADA [Concomitant]
     Indication: HIV INFECTION
  3. AZITHROMYCIN [Concomitant]
     Indication: PROPHYLAXIS
  4. BACTRIM [Concomitant]
     Indication: PROPHYLAXIS

REACTIONS (1)
  - OEDEMA PERIPHERAL [None]
